FAERS Safety Report 26063786 (Version 1)
Quarter: 2025Q4

REPORT INFORMATION
  Report Type: Spontaneous
  Country: US (occurrence: None)
  Receive Date: 20251118
  Receipt Date: 20251118
  Transmission Date: 20260118
  Serious: Yes (Other)
  Sender: FDA-CTU
  Company Number: None

PATIENT
  Age: 25 Year
  Sex: Female
  Weight: 85.5 kg

DRUGS (2)
  1. FLONASE [Suspect]
     Active Substance: FLUTICASONE PROPIONATE
     Indication: Seasonal allergy
     Dosage: FREQUENCY : AS NEEDED;?
     Route: 045
     Dates: start: 20190720, end: 20191118
  2. KIRKLAND SIGNATURE ALLER FLO [Suspect]
     Active Substance: FLUTICASONE PROPIONATE

REACTIONS (1)
  - Cataract [None]

NARRATIVE: CASE EVENT DATE: 20251118
